FAERS Safety Report 5927089-2 (Version None)
Quarter: 2008Q4

REPORT INFORMATION
  Report Type: 
  Country: None (occurrence: None)
  Receive Date: 20081022
  Receipt Date: 20081021
  Transmission Date: 20090506
  Serious: Yes (Death, Hospitalization, Other)
  Sender: FDA-Public Use
  Company Number: JP-B.I. PHARMACEUTICALS,INC./RIDGEFIELD-2007-BP-25509NB

PATIENT
  Sex: Male
  Weight: 72.6 kg

DRUGS (10)
  1. MICARDIS [Suspect]
     Indication: HYPERTENSION
     Dosage: 40MG
     Dates: start: 20061108, end: 20070723
  2. URSO 250 [Concomitant]
     Indication: HEPATIC CIRRHOSIS
     Dosage: 150MG
     Route: 048
     Dates: end: 20070723
  3. ALTAT [Concomitant]
     Indication: GASTRIC ULCER
     Dosage: 150MG
     Route: 048
     Dates: end: 20070723
  4. ATELEC [Concomitant]
     Indication: HYPERTENSION
     Dosage: 10MG
     Route: 048
     Dates: start: 20061108, end: 20070723
  5. GLIMICRON [Concomitant]
     Indication: DIABETES MELLITUS
     Dosage: 80MG
     Route: 048
     Dates: start: 20061108, end: 20070723
  6. GLUCOBAY [Concomitant]
     Indication: DIABETES MELLITUS
     Dosage: 200MG
     Route: 048
     Dates: start: 20061108, end: 20070723
  7. METFORMIN HYDROCHLORIDE [Concomitant]
     Indication: DIABETES MELLITUS
     Dosage: 750MG
     Route: 048
     Dates: start: 20061108, end: 20070723
  8. ITOROL [Concomitant]
     Indication: ANGINA PECTORIS
     Dosage: 40MG
     Route: 048
     Dates: start: 20061108, end: 20070723
  9. RYTHMODAN R (DISOPYRAMIDE PHOSPHATE) [Concomitant]
     Indication: VENTRICULAR EXTRASYSTOLES
     Dosage: 300MG
     Route: 048
     Dates: start: 20061108, end: 20070723
  10. SIGMART [Concomitant]
     Indication: ANGINA PECTORIS
     Dosage: 15MG
     Route: 048
     Dates: start: 20061108, end: 20070723

REACTIONS (3)
  - MULTI-ORGAN FAILURE [None]
  - RECTAL CANCER [None]
  - SEPSIS [None]
